FAERS Safety Report 18306605 (Version 1)
Quarter: 2020Q3

REPORT INFORMATION
  Report Type: Spontaneous
  Country: US (occurrence: US)
  Receive Date: 20200923
  Receipt Date: 20200923
  Transmission Date: 20201103
  Serious: Yes (Hospitalization, Other)
  Sender: FDA-Public Use
  Company Number: None

PATIENT
  Age: 73 Year
  Sex: Male

DRUGS (2)
  1. DOXAZOSIN (DOXAZOSIN MESYLATE 2MG TAB) [Suspect]
     Active Substance: DOXAZOSIN MESYLATE
     Indication: HYPERTENSION
     Route: 048
     Dates: start: 20191108, end: 20200309
  2. DOXAZOSIN (DOXAZOSIN MESYLATE 2MG TAB) [Suspect]
     Active Substance: DOXAZOSIN MESYLATE
     Indication: BENIGN PROSTATIC HYPERPLASIA
     Route: 048
     Dates: start: 20191108, end: 20200309

REACTIONS (4)
  - Hypophagia [None]
  - Failure to thrive [None]
  - Fall [None]
  - Syncope [None]

NARRATIVE: CASE EVENT DATE: 20200306
